FAERS Safety Report 19746443 (Version 1)
Quarter: 2021Q3

REPORT INFORMATION
  Report Type: Spontaneous
  Country: US (occurrence: US)
  Receive Date: 20210825
  Receipt Date: 20210825
  Transmission Date: 20211014
  Serious: No
  Sender: FDA-Public Use
  Company Number: US-ASTRAZENECA-2021A685674

PATIENT

DRUGS (9)
  1. CYCLOBENZAPRINE. [Concomitant]
     Active Substance: CYCLOBENZAPRINE
  2. PFIZER?BIONTECH COVID?19 VACCINE [Suspect]
     Active Substance: TOZINAMERAN
     Route: 065
     Dates: start: 20210410
  3. OMEPRAZOLE GENERIC [Suspect]
     Active Substance: OMEPRAZOLE
     Indication: HICCUPS
     Dosage: UNKNOWN
     Route: 048
  4. OMEPRAZOLE GENERIC [Suspect]
     Active Substance: OMEPRAZOLE
     Indication: ABDOMINAL PAIN UPPER
     Dosage: UNKNOWN
     Route: 048
  5. OMEPRAZOLE GENERIC [Suspect]
     Active Substance: OMEPRAZOLE
     Indication: CONSTIPATION
     Dosage: UNKNOWN
     Route: 048
  6. GABAPENTIN. [Concomitant]
     Active Substance: GABAPENTIN
  7. BUSIPRISONE [Concomitant]
  8. DOXYCYCLINE DYCLO [Concomitant]
  9. DYCLOFENAC [Concomitant]

REACTIONS (7)
  - Spondylitis [Not Recovered/Not Resolved]
  - Oropharyngeal pain [Not Recovered/Not Resolved]
  - Pruritus [Not Recovered/Not Resolved]
  - Injection site pruritus [Not Recovered/Not Resolved]
  - Spinal pain [Not Recovered/Not Resolved]
  - Hypersensitivity [Unknown]
  - Pharyngeal swelling [Not Recovered/Not Resolved]

NARRATIVE: CASE EVENT DATE: 20210410
